FAERS Safety Report 7866508-1 (Version None)
Quarter: 2011Q4

REPORT INFORMATION
  Report Type: 
  Country: None (occurrence: None)
  Receive Date: 20111028
  Receipt Date: 20110627
  Transmission Date: 20120403
  Serious: No
  Sender: FDA-Public Use
  Company Number: US-GLAXOSMITHKLINE-A0933258A

PATIENT
  Sex: Female

DRUGS (8)
  1. ALEVE [Concomitant]
  2. ADVAIR DISKUS 100/50 [Suspect]
     Indication: BRONCHITIS
     Dosage: 1PUFF TWICE PER DAY
     Route: 055
     Dates: start: 20090830, end: 20110626
  3. ALBUTEROL [Concomitant]
  4. EXPECTORANT [Concomitant]
  5. VITAMIN TAB [Concomitant]
  6. LIPITOR [Concomitant]
  7. NORVASC [Concomitant]
  8. XANAX [Concomitant]

REACTIONS (3)
  - MUSCULOSKELETAL STIFFNESS [None]
  - TENDONITIS [None]
  - PAIN IN EXTREMITY [None]
